FAERS Safety Report 15428051 (Version 1)
Quarter: 2018Q3

REPORT INFORMATION
  Report Type: Spontaneous
  Country: US (occurrence: US)
  Receive Date: 20180926
  Receipt Date: 20180926
  Transmission Date: 20181010
  Serious: No
  Sender: FDA-Public Use
  Company Number: US-PRINSTON PHARMACEUTICAL INC.-2018PRN00677

PATIENT
  Sex: Female

DRUGS (1)
  1. VALSARTAN. [Suspect]
     Active Substance: VALSARTAN
     Indication: HYPERTENSION
     Dosage: 160 MG, 1X/DAY
     Route: 048
     Dates: start: 20180605, end: 201807

REACTIONS (10)
  - Peripheral swelling [Unknown]
  - Blister [Unknown]
  - Chest discomfort [Unknown]
  - Erythema [Unknown]
  - Abdominal pain [Unknown]
  - Pruritus [Unknown]
  - Back pain [Unknown]
  - Dizziness [Unknown]
  - Urticaria [Unknown]
  - Fatigue [Unknown]

NARRATIVE: CASE EVENT DATE: 2018
